FAERS Safety Report 15757022 (Version 1)
Quarter: 2018Q4

REPORT INFORMATION
  Report Type: Spontaneous
  Country: ID (occurrence: ID)
  Receive Date: 20181224
  Receipt Date: 20181224
  Transmission Date: 20190205
  Serious: Yes (Hospitalization)
  Sender: FDA-Public Use
  Company Number: ID-PFIZER INC-2018527502

PATIENT
  Age: 14 Year
  Sex: Female
  Weight: 48.98 kg

DRUGS (6)
  1. ETHIONAMIDE [Suspect]
     Active Substance: ETHIONAMIDE
     Indication: TUBERCULOSIS
     Dosage: 500 MG, DAILY (QD)
     Route: 048
     Dates: start: 20180727, end: 20180821
  2. LINEZOLID. [Suspect]
     Active Substance: LINEZOLID
     Indication: TUBERCULOSIS
     Dosage: 600 MG, DAILY (QD)
     Route: 048
     Dates: start: 20181010
  3. CYCLOSERINE. [Suspect]
     Active Substance: CYCLOSERINE
     Indication: TUBERCULOSIS
     Dosage: 500 MG, DAILY (QD)
     Route: 048
     Dates: start: 20180727, end: 20180821
  4. LEVOFLOXACIN. [Suspect]
     Active Substance: LEVOFLOXACIN
     Indication: TUBERCULOSIS
     Dosage: 750 MG, DAILY (QD)
     Route: 048
     Dates: start: 20180727, end: 20180821
  5. DELAMANID [Suspect]
     Active Substance: DELAMANID
     Indication: TUBERCULOSIS
     Dosage: 100 MG, 2X/DAY (BID)
     Route: 048
     Dates: start: 20180727, end: 20180821
  6. CLOFAZIMINE [Suspect]
     Active Substance: CLOFAZIMINE
     Indication: TUBERCULOSIS
     Dosage: 100 MG, DAILY (QD)
     Route: 048
     Dates: start: 20180727, end: 20180821

REACTIONS (10)
  - Pyrexia [Recovered/Resolved]
  - Product use in unapproved indication [Unknown]
  - Myalgia [Unknown]
  - Headache [Unknown]
  - Leukopenia [Recovered/Resolved]
  - Viral infection [Unknown]
  - Aspartate aminotransferase increased [Unknown]
  - Dermatitis exfoliative generalised [Recovered/Resolved]
  - Rash [Unknown]
  - Blood potassium decreased [Unknown]

NARRATIVE: CASE EVENT DATE: 20180802
